FAERS Safety Report 15555281 (Version 1)
Quarter: 2018Q4

REPORT INFORMATION
  Report Type: Other
  Country: None (occurrence: DE)
  Receive Date: 20181026
  Receipt Date: 20181026
  Transmission Date: 20190205
  Serious: Yes (Death, Life-Threatening, Hospitalization, Other)
  Sender: FDA-Public Use
  Company Number: DE-MACLEODS PHARMACEUTICALS US LTD-MAC2018018117

PATIENT

DRUGS (52)
  1. PANTOPRAZOLE [Suspect]
     Active Substance: PANTOPRAZOLE
     Dosage: 80 MILLIGRAM, QD
     Route: 048
     Dates: start: 20010616
  2. CARBIMAZOLE [Suspect]
     Active Substance: CARBIMAZOLE
     Indication: HYPERTHYROIDISM
     Dosage: 30 MILLIGRAM, QD, DOSE RANGED FROM 20-30 MG DAILY
     Route: 048
     Dates: start: 20010621, end: 20010714
  3. HALDOL [Suspect]
     Active Substance: HALOPERIDOL
     Indication: RESTLESSNESS
     Dosage: 3 DROP ORAL, UNK
     Route: 048
     Dates: start: 20010713, end: 20010714
  4. PREDNISONE. [Suspect]
     Active Substance: PREDNISONE
     Indication: DYSPNOEA
     Dosage: 50 MILLIGRAM, UNK
     Route: 048
     Dates: start: 20010703, end: 20010703
  5. FRAGMIN [Suspect]
     Active Substance: DALTEPARIN SODIUM
     Indication: THROMBOSIS PROPHYLAXIS
     Dosage: 2500 INTERNATIONAL UNIT FOR 12 DAYS
     Route: 058
     Dates: start: 20010703, end: 20010714
  6. PANTOPRAZOLE [Suspect]
     Active Substance: PANTOPRAZOLE
     Indication: PROPHYLAXIS
     Dosage: 80 MILLIGRAM, QD
     Route: 048
     Dates: end: 20010714
  7. METFORMIN HYDROCHLORIDE. [Suspect]
     Active Substance: METFORMIN HYDROCHLORIDE
     Indication: DIABETES MELLITUS
  8. PREDNISOLONE TABLET [Suspect]
     Active Substance: PREDNISOLONE
     Indication: DYSPNOEA
     Dosage: 50 MILLIGRAM, QD
     Route: 048
     Dates: start: 20010703, end: 20010703
  9. ACETYLDIGOXIN [Suspect]
     Active Substance: .BETA.-ACETYLDIGOXIN
     Indication: CORONARY ARTERY DISEASE
     Dosage: 1 DOSAGE FORM
     Route: 048
     Dates: start: 20010703
  10. DIAZEPAM. [Suspect]
     Active Substance: DIAZEPAM
     Indication: RESTLESSNESS
     Dosage: 5 MILLIGRAM
     Route: 048
     Dates: start: 20010616, end: 20010703
  11. BROMAZEPAM [Concomitant]
     Active Substance: BROMAZEPAM
     Indication: RESTLESSNESS
     Dosage: 2 MILLIGRAM
     Route: 048
     Dates: start: 20010713, end: 20010714
  12. POTASSIUM [Concomitant]
     Active Substance: POTASSIUM
     Dosage: UNK UNK, BID
     Route: 048
     Dates: start: 20010703, end: 20010714
  13. AMARYL [Suspect]
     Active Substance: GLIMEPIRIDE
     Indication: DIABETES MELLITUS
     Dosage: 3 MILLIGRAM, QD (EVERY 18 DAYS )
     Route: 048
     Dates: start: 20010616, end: 20010703
  14. DIPOTASSIUM CLORAZEPATE [Suspect]
     Active Substance: CLORAZEPATE DIPOTASSIUM
     Indication: RESTLESSNESS
     Dosage: UNK
     Route: 048
  15. DIPOTASSIUM CLORAZEPATE [Suspect]
     Active Substance: CLORAZEPATE DIPOTASSIUM
     Dosage: 10 MILLIGRAM, UNK
     Route: 048
     Dates: start: 20010710, end: 20010714
  16. EUNERPAN [Suspect]
     Active Substance: MELPERONE HYDROCHLORIDE
     Indication: RESTLESSNESS
     Dosage: 105 MILLIGRAM, QD DOSE RANGED FROM 80-105 MG DAILY
     Route: 048
     Dates: start: 20010706, end: 20010712
  17. PANTOZOL [Suspect]
     Active Substance: PANTOPRAZOLE SODIUM
     Dosage: 80 MILLIGRAM, QD
     Route: 048
  18. RAMIPRIL. [Suspect]
     Active Substance: RAMIPRIL
     Dosage: 5 MILLIGRAM, QD
     Route: 048
     Dates: start: 20010616, end: 20010714
  19. TRANXENE [Suspect]
     Active Substance: CLORAZEPATE DIPOTASSIUM
     Indication: RESTLESSNESS
     Dosage: UNK
     Route: 048
     Dates: start: 20010710
  20. ZAROXOLYN [Suspect]
     Active Substance: METOLAZONE
     Indication: HYPERTENSION
     Dosage: 2 MG, UNK
     Route: 048
     Dates: start: 20010712, end: 20010713
  21. SORTIS [Suspect]
     Active Substance: ATORVASTATIN
     Indication: HYPERLIPIDAEMIA
     Dosage: 20 MILLIGRAM, QD
     Route: 048
     Dates: start: 20010616, end: 20010703
  22. ASPIRIN. [Suspect]
     Active Substance: ASPIRIN
     Indication: CORONARY ARTERY DISEASE
     Dosage: 100 MILLIGRAM TABLET QD
     Route: 048
     Dates: start: 20010616, end: 20010714
  23. CIPROFLOXACIN TABLETS [Suspect]
     Active Substance: CIPROFLOXACIN
     Indication: CHOLECYSTITIS
     Dosage: 500 MILLIGRAM, BID
     Route: 048
     Dates: start: 20010620, end: 20010628
  24. PARACETAMOL [Suspect]
     Active Substance: ACETAMINOPHEN
     Indication: PAIN
     Dosage: 500 MILLIGRAM, UNK
     Route: 048
     Dates: start: 20010711, end: 20010711
  25. PANTOZOL [Suspect]
     Active Substance: PANTOPRAZOLE SODIUM
     Indication: PROPHYLAXIS
     Dosage: 40 MILLIGRAM, QD
     Route: 048
     Dates: start: 20010616, end: 20010714
  26. NORVASC [Suspect]
     Active Substance: AMLODIPINE BESYLATE
     Indication: CORONARY ARTERY DISEASE
     Dosage: 5 MILLIGRAM, QD
     Route: 048
     Dates: start: 20010703, end: 20010714
  27. POTASSIUM [Concomitant]
     Active Substance: POTASSIUM
     Indication: ELECTROLYTE IMBALANCE
     Dosage: 1500 MILLIGRAM, BID
     Route: 048
     Dates: start: 20010703, end: 20010714
  28. CAPTOPRIL. [Suspect]
     Active Substance: CAPTOPRIL
     Indication: CORONARY ARTERY DISEASE
     Dosage: 1 DOSAGE FORM, EVERY 29 DAYS, 1MOL/ML
     Route: 048
     Dates: start: 20010616, end: 20010714
  29. AMPHOTERICIN B, TETRACYCLINE [Suspect]
     Active Substance: AMPHOTERICIN B\TETRACYCLINE
     Indication: ANTIFUNGAL PROPHYLAXIS
     Dosage: 200 MILLIGRAM, QD
     Route: 048
     Dates: start: 20010703, end: 20010714
  30. PLAVIX [Suspect]
     Active Substance: CLOPIDOGREL BISULFATE
     Indication: CORONARY ARTERY DISEASE
     Dosage: 75 MILLIGRAM FILM COATED TABLET
     Route: 048
     Dates: start: 20010704, end: 20010714
  31. PREDNISONE. [Suspect]
     Active Substance: PREDNISONE
     Indication: RESTLESSNESS
  32. RAMIPRIL. [Suspect]
     Active Substance: RAMIPRIL
     Dosage: 10 UNK
     Route: 048
     Dates: start: 20010616, end: 20010714
  33. LANTUS [Suspect]
     Active Substance: INSULIN GLARGINE
     Indication: DIABETES MELLITUS
     Dosage: 16 INTERNATIONAL UNIT
     Route: 058
     Dates: start: 20010616, end: 20010629
  34. FUROSEMIDE. [Suspect]
     Active Substance: FUROSEMIDE
     Indication: HYPERTENSION
     Dosage: 80 MILLIGRAM, QD
     Route: 042
     Dates: start: 20010703, end: 20010714
  35. GLIMEPIRIDE. [Concomitant]
     Active Substance: GLIMEPIRIDE
     Indication: DIABETES MELLITUS
     Dosage: 3 MILLIGRAM
     Route: 048
     Dates: start: 20010616, end: 20010703
  36. INSULIN GLARGINE [Concomitant]
     Active Substance: INSULIN GLARGINE
     Indication: DIABETES MELLITUS
     Dosage: 16 INTERNATIONAL UNIT
     Route: 058
     Dates: start: 20010629
  37. MOLSIDOMINE [Suspect]
     Active Substance: MOLSIDOMINE
     Indication: CORONARY ARTERY DISEASE
     Dosage: 8 MILLIGRAM  QD FOR 12 DAYS
     Route: 048
     Dates: start: 20010703, end: 20010714
  38. MOLSIDOMINE [Suspect]
     Active Substance: MOLSIDOMINE
     Dosage: 8 MILLIGRAM FOR 12 DAYS
     Route: 048
     Dates: start: 20010703, end: 20010714
  39. PERENTEROL [Suspect]
     Active Substance: SACCHAROMYCES CEREVISIAE
     Indication: DIARRHOEA
     Dosage: 300 MILLIGRAM UNK
     Route: 048
     Dates: start: 20010711, end: 20010714
  40. RAMIPRIL. [Suspect]
     Active Substance: RAMIPRIL
     Indication: CORONARY ARTERY DISEASE
     Dosage: 5 MILLIGRAM, UNK, EVERY 29 DAY
     Route: 048
     Dates: start: 20010616, end: 20010714
  41. DIGOXIN. [Suspect]
     Active Substance: DIGOXIN
     Indication: CORONARY ARTERY DISEASE
     Dosage: 4 MILLIGRAM, QD
     Route: 048
     Dates: start: 20010703, end: 20010714
  42. ATORVASTATIN [Concomitant]
     Active Substance: ATORVASTATIN
     Indication: HYPERLIPIDAEMIA
     Dosage: 20 MILLIGRAM, QD
     Route: 065
     Dates: start: 20010616, end: 20010703
  43. METFORMIN HYDROCHLORIDE. [Suspect]
     Active Substance: METFORMIN HYDROCHLORIDE
     Indication: CORONARY ARTERY DISEASE
     Dosage: 250 MILLIGRAM
     Route: 048
     Dates: start: 20010616, end: 20010714
  44. CIPROFLOXACIN TABLETS [Suspect]
     Active Substance: CIPROFLOXACIN
     Dosage: 250 MG,BID
     Route: 048
     Dates: start: 20010710, end: 20010711
  45. IRENAT [Suspect]
     Active Substance: SODIUM PERCHLORATE
     Indication: HYPERTHYROIDISM
     Dosage: 688 MILLIGRAM, UNK (TOTAL DAILY DOSE RANGED FROM 1376.8 MG TO 2065.2 MG)
     Route: 048
     Dates: start: 20010618, end: 20010714
  46. LASIX [Suspect]
     Active Substance: FUROSEMIDE
     Indication: HYPERTENSION
     Dosage: 120 MILLIGRAM, QD DOSE RANGED FROM 80 MG-120 MG DAILY
     Route: 048
     Dates: start: 20010703, end: 20010714
  47. SODIUM PERCHLORATE [Concomitant]
     Active Substance: SODIUM PERCHLORATE
     Indication: HYPERTHYROIDISM
     Dosage: 60 DROP, QD
     Route: 048
     Dates: start: 20010618, end: 20010714
  48. ISOSORBIDE MONONITRATE. [Suspect]
     Active Substance: ISOSORBIDE MONONITRATE
     Indication: PRODUCT USED FOR UNKNOWN INDICATION
     Dosage: 1 DOSAGE FORM, QD
     Route: 048
     Dates: start: 20010703, end: 20010714
  49. METOCLOPRAMIDE. [Suspect]
     Active Substance: METOCLOPRAMIDE
     Indication: NAUSEA
     Dosage: 7 MILLIGRAM, UNK
     Route: 048
     Dates: start: 20010704, end: 20010712
  50. CEFTRIAXONE. [Suspect]
     Active Substance: CEFTRIAXONE
     Indication: PYREXIA
     Dosage: 2 GRAM, QD (CUMULATIVE DOSE 10 G)
     Route: 042
     Dates: start: 20010629, end: 20010703
  51. CONCOR [Suspect]
     Active Substance: BISOPROLOL FUMARATE
     Indication: CORONARY ARTERY DISEASE
     Dosage: 8 MG, EVERY 29 DAYS
     Route: 048
     Dates: start: 20010616, end: 20010714
  52. BISOPROLOL [Concomitant]
     Active Substance: BISOPROLOL
     Indication: CORONARY ARTERY DISEASE
     Dosage: 5 MILLIGRAM
     Route: 048

REACTIONS (14)
  - Condition aggravated [Fatal]
  - Toxic epidermal necrolysis [Fatal]
  - Dermatitis exfoliative [Fatal]
  - Respiratory disorder [Fatal]
  - Erythema [Fatal]
  - Restlessness [Fatal]
  - Multiple organ dysfunction syndrome [Fatal]
  - Diarrhoea [Fatal]
  - Cholecystitis [Fatal]
  - Hyperthyroidism [Fatal]
  - Blister [Fatal]
  - Cholelithiasis [Fatal]
  - Electrolyte imbalance [Fatal]
  - Nausea [Fatal]

NARRATIVE: CASE EVENT DATE: 20010703
